FAERS Safety Report 7722242 (Version 5)
Quarter: 2013Q3

REPORT INFORMATION
  Report Type: Report from Study
  Country: IT (occurrence: IT)
  Receive Date: 20101220
  Receipt Date: 20130923
  Transmission Date: 20140515
  Serious: Yes (Hospitalization)
  Sender: FDA-Public Use
  Company Number: IT-JNJFOC-20101204761

PATIENT
  Age: 9 Year
  Sex: Male
  Weight: 28.8 kg

DRUGS (8)
  1. REMICADE [Suspect]
     Indication: CROHN^S DISEASE
     Route: 042
     Dates: start: 20110628
  2. REMICADE [Suspect]
     Indication: CROHN^S DISEASE
     Route: 042
     Dates: start: 20101026
  3. REMICADE [Suspect]
     Indication: CROHN^S DISEASE
     Route: 042
     Dates: start: 20091124
  4. AZATHIOPRINE [Concomitant]
  5. PPI [Concomitant]
  6. ANTIBIOTICS [Concomitant]
     Indication: CROHN^S DISEASE
  7. PREDNISONE [Concomitant]
  8. 5-ASA [Concomitant]
     Route: 054

REACTIONS (1)
  - Crohn^s disease [Recovered/Resolved]
